FAERS Safety Report 6790931-X (Version None)
Quarter: 2010Q2

REPORT INFORMATION
  Report Type: 
  Country: None (occurrence: None)
  Receive Date: 20100624
  Receipt Date: 20100621
  Transmission Date: 20101027
  Serious: Yes (Other)
  Sender: FDA-Public Use
  Company Number: US-RB-008473-10

PATIENT
  Age: 60 Year
  Sex: Female

DRUGS (2)
  1. SUBOXONE [Suspect]
     Indication: DRUG DEPENDENCE
     Route: 060
     Dates: start: 20100501, end: 20100503
  2. SUBOXONE [Suspect]
     Route: 060
     Dates: start: 20100504

REACTIONS (6)
  - DRUG WITHDRAWAL SYNDROME [None]
  - HALLUCINATION, AUDITORY [None]
  - HALLUCINATION, VISUAL [None]
  - HEADACHE [None]
  - PAIN IN EXTREMITY [None]
  - TOOTHACHE [None]
